FAERS Safety Report 7970115-X (Version None)
Quarter: 2011Q4

REPORT INFORMATION
  Report Type: 
  Country: None (occurrence: None)
  Receive Date: 20111122
  Receipt Date: 20110803
  Transmission Date: 20120403
  Serious: No
  Sender: FDA-Public Use
  Company Number: PHHY2011US40131

PATIENT
  Age: 50 Year
  Sex: Female

DRUGS (1)
  1. GILENYA [Suspect]
     Indication: MULTIPLE SCLEROSIS
     Dosage: 0.5 MG, DAILY, ORAL; 0.5 MG, 1 PILL OF GILENYA WEEKLY, ORAL; 0.5 MG, DAILY, ORAL
     Route: 048
     Dates: start: 20110509, end: 20110515

REACTIONS (8)
  - PRURITUS [None]
  - DIZZINESS [None]
  - INCORRECT DOSE ADMINISTERED [None]
  - GAIT DISTURBANCE [None]
  - ARTHRALGIA [None]
  - FATIGUE [None]
  - JOINT SWELLING [None]
  - MUSCULAR WEAKNESS [None]
